FAERS Safety Report 9156754 (Version 2)
Quarter: 2013Q2

REPORT INFORMATION
  Report Type: Spontaneous
  Country: US (occurrence: US)
  Receive Date: 20130312
  Receipt Date: 20130410
  Transmission Date: 20140414
  Serious: Yes (Other)
  Sender: FDA-Public Use
  Company Number: US-ELI_LILLY_AND_COMPANY-US201303000171

PATIENT
  Sex: Female

DRUGS (3)
  1. CYMBALTA [Suspect]
     Indication: MAJOR DEPRESSION
     Dosage: 90 MG, QD
  2. LAMICTAL [Concomitant]
     Dosage: 400 MG, UNK
  3. TRAMADOL [Interacting]
     Indication: MIGRAINE

REACTIONS (9)
  - Renal cancer [Unknown]
  - Agitation [Unknown]
  - Irritability [Unknown]
  - Migraine [Unknown]
  - Abnormal dreams [Unknown]
  - Anxiety [Unknown]
  - Memory impairment [Unknown]
  - Disturbance in attention [Unknown]
  - Drug interaction [Unknown]
